FAERS Safety Report 4367411-4 (Version None)
Quarter: 2004Q2

REPORT INFORMATION
  Report Type: 
  Country: None (occurrence: None)
  Receive Date: 20040528
  Receipt Date: 20040528
  Transmission Date: 20050107
  Serious: Yes (Other)
  Sender: FDA-Public Use
  Company Number: None

PATIENT
  Age: 56 Year
  Sex: Female
  Weight: 54.4316 kg

DRUGS (1)
  1. ZYPREXA [Suspect]
     Dates: start: 20040101, end: 20041231

REACTIONS (3)
  - COGNITIVE DISORDER [None]
  - FATIGUE [None]
  - WEIGHT INCREASED [None]
